FAERS Safety Report 6728632-6 (Version None)
Quarter: 2010Q2

REPORT INFORMATION
  Report Type: 
  Country: None (occurrence: None)
  Receive Date: 20100517
  Receipt Date: 20100505
  Transmission Date: 20101027
  Serious: Yes (Hospitalization)
  Sender: FDA-Public Use
  Company Number: AT-ELI_LILLY_AND_COMPANY-AT201005001348

PATIENT
  Age: 51 Year
  Sex: Male
  Weight: 86 kg

DRUGS (7)
  1. ZYPREXA [Suspect]
     Dosage: 30 MG, DAILY (1/D)
     Dates: start: 20090527
  2. LORAZEPAM [Concomitant]
     Dosage: 7.5 MG, DAILY (1/D)
     Dates: start: 20090527
  3. SELOKEN /00376903/ [Concomitant]
     Dosage: 47.5 MG, DAILY (1/D)
     Dates: start: 20090528
  4. QUILONORM RETARD [Concomitant]
     Dosage: 900 MG, DAILY (1/D)
     Dates: start: 20090609
  5. AMITRIPTYLINE HCL [Concomitant]
     Dosage: 25 MG, DAILY (1/D)
     Dates: start: 20090527
  6. TEGRETOL [Concomitant]
     Dosage: 200 MG, DAILY (1/D)
     Dates: start: 20090604, end: 20090604
  7. TEGRETOL [Concomitant]
     Dosage: 400 MG, DAILY (1/D)
     Dates: start: 20090605, end: 20090608

REACTIONS (3)
  - HEART RATE INCREASED [None]
  - LIVER FUNCTION TEST ABNORMAL [None]
  - OVERDOSE [None]
